FAERS Safety Report 8925357 (Version 3)
Quarter: 2013Q1

REPORT INFORMATION
  Report Type: Spontaneous
  Country: CH (occurrence: CH)
  Receive Date: 20121126
  Receipt Date: 20130214
  Transmission Date: 20140127
  Serious: Yes (Death, Other)
  Sender: FDA-Public Use
  Company Number: CH-ABBOTT-12P-151-1012183-00

PATIENT
  Age: 78 None
  Sex: Female
  Weight: 107 kg

DRUGS (8)
  1. HUMIRA [Suspect]
     Indication: PSORIASIS
     Dates: start: 201107, end: 20120326
  2. ISOPTIN SR 240 MG [Suspect]
     Indication: HYPERTONIA
     Dates: start: 20120606, end: 20120715
  3. SPIRICORT [Concomitant]
     Indication: CLUSTER HEADACHE
     Dates: start: 20120630, end: 20120715
  4. PHENPROCOUMON [Concomitant]
     Indication: PULMONARY EMBOLISM
     Dosage: ACCORDING TO QUICK/INR
     Dates: start: 20120511, end: 20120715
  5. TOPIRAMAT [Concomitant]
     Indication: HEADACHE
     Dates: start: 20120611, end: 20120715
  6. SIBELIUM [Concomitant]
     Indication: HEADACHE
     Dates: start: 20120706, end: 20120715
  7. ESOMEPRAZOL [Concomitant]
     Indication: GASTRIC DISORDER
     Dates: start: 20120620, end: 20120715
  8. ESOMEPRAZOL [Concomitant]
     Indication: PROPHYLAXIS

REACTIONS (18)
  - Mycotic aneurysm [Fatal]
  - Facial pain [Unknown]
  - Headache [Unknown]
  - Knee operation [Unknown]
  - Cataract [Unknown]
  - Paraesthesia [Unknown]
  - Temporomandibular joint syndrome [Unknown]
  - Photophobia [Unknown]
  - Hyperacusis [Unknown]
  - Nausea [Unknown]
  - Oedema peripheral [Unknown]
  - Hyporeflexia [Unknown]
  - Hyporeflexia [Unknown]
  - Tinel^s sign [Unknown]
  - Gait disturbance [Unknown]
  - Vertigo [Unknown]
  - Migraine [Unknown]
  - Tooth extraction [Unknown]
